FAERS Safety Report 7701071-7 (Version None)
Quarter: 2011Q3

REPORT INFORMATION
  Report Type: 
  Country: None (occurrence: None)
  Receive Date: 20110819
  Receipt Date: 20110819
  Transmission Date: 20111222
  Serious: Yes (Other)
  Sender: FDA-Public Use
  Company Number: None

PATIENT
  Age: 7 Year
  Sex: Male

DRUGS (1)
  1. CHILDREN'S IBUPROFEN [Suspect]
     Dates: start: 20110812

REACTIONS (5)
  - PRODUCT CONTAMINATION PHYSICAL [None]
  - SWELLING FACE [None]
  - DRUG HYPERSENSITIVITY [None]
  - FEELING ABNORMAL [None]
  - ADVERSE REACTION [None]
